FAERS Safety Report 9094231 (Version 1)
Quarter: 2013Q1

REPORT INFORMATION
  Report Type: Spontaneous
  Country: US (occurrence: US)
  Receive Date: 20130201
  Receipt Date: 20130201
  Transmission Date: 20140127
  Serious: Yes (Hospitalization, Disabling, Other)
  Sender: FDA-Public Use
  Company Number: US-009507513-1008USA00265

PATIENT
  Sex: Female
  Weight: 69.4 kg

DRUGS (7)
  1. FOSAMAX [Suspect]
     Indication: OSTEOPENIA
     Dosage: 70 MG, QW
     Route: 048
     Dates: start: 20010625, end: 20070822
  2. FOSAMAX [Suspect]
     Indication: OSTEOPOROSIS PROPHYLAXIS
  3. FOSAMAX PLUS D [Suspect]
     Indication: OSTEOPENIA
     Dosage: 70 MG, QW
     Route: 048
     Dates: start: 20070822, end: 200804
  4. VITAMIN D (UNSPECIFIED) [Concomitant]
     Dosage: UNK IU, UNK
     Route: 048
     Dates: start: 1996
  5. CALCIUM (UNSPECIFIED) (+) VITAMIN D (UNSPECIFIED) [Concomitant]
     Dosage: UNK MG, UNK
     Route: 048
     Dates: start: 19960101
  6. PRILOSEC [Concomitant]
     Indication: GASTROOESOPHAGEAL REFLUX DISEASE
     Route: 048
     Dates: start: 1998, end: 2008
  7. PROTONIX [Concomitant]
     Indication: GASTROOESOPHAGEAL REFLUX DISEASE
     Dates: start: 2000

REACTIONS (49)
  - Femur fracture [Unknown]
  - Open reduction of fracture [Unknown]
  - Bone disorder [Not Recovered/Not Resolved]
  - Stress fracture [Not Recovered/Not Resolved]
  - Femur fracture [Not Recovered/Not Resolved]
  - Low turnover osteopathy [Not Recovered/Not Resolved]
  - Bone infarction [Unknown]
  - Fall [Unknown]
  - Rib fracture [Unknown]
  - Blood cholesterol increased [Unknown]
  - Depression [Unknown]
  - Osteoporosis [Unknown]
  - Large intestine benign neoplasm [Unknown]
  - Body height decreased [Not Recovered/Not Resolved]
  - Fall [Unknown]
  - Plantar fasciitis [Unknown]
  - Bone lesion [Unknown]
  - Herpes zoster [Unknown]
  - Paraesthesia [Unknown]
  - Spinal osteoarthritis [Unknown]
  - Onychomycosis [Unknown]
  - Stress [Unknown]
  - Anxiety [Unknown]
  - Throat irritation [Unknown]
  - Agitation [Unknown]
  - Adverse drug reaction [Unknown]
  - Osteoarthritis [Unknown]
  - Sinus congestion [Unknown]
  - Adverse drug reaction [Unknown]
  - Adverse drug reaction [Unknown]
  - Upper respiratory tract congestion [Unknown]
  - Jaw disorder [Unknown]
  - Tooth fracture [Unknown]
  - Pain [Not Recovered/Not Resolved]
  - Ulcer [Unknown]
  - Insomnia [Unknown]
  - Drug intolerance [Unknown]
  - Amnesia [Unknown]
  - Arthropathy [Unknown]
  - Hallucination [Unknown]
  - Herpes zoster meningitis [Unknown]
  - Adverse event [Unknown]
  - Abdominal discomfort [Unknown]
  - Abdominal distension [Unknown]
  - Musculoskeletal discomfort [Unknown]
  - Dizziness [Not Recovered/Not Resolved]
  - Oesophagitis [Unknown]
  - Gastrooesophageal reflux disease [Unknown]
  - Dysphagia [Unknown]
